FAERS Safety Report 4604967-8 (Version None)
Quarter: 2005Q1

REPORT INFORMATION
  Report Type: 
  Country: None (occurrence: None)
  Receive Date: 20050310
  Receipt Date: 20050310
  Transmission Date: 20050727
  Serious: Yes (Other)
  Sender: FDA-Public Use
  Company Number: None

PATIENT
  Age: 53 Year
  Sex: Female

DRUGS (1)
  1. CITALOPRAM 40 MG CIPLA (WATSON) [Suspect]
     Dosage: ONE DAILY
     Dates: start: 20050301, end: 20050308

REACTIONS (1)
  - FLATULENCE [None]
